FAERS Safety Report 8960533 (Version 1)
Quarter: 2012Q4

REPORT INFORMATION
  Report Type: Spontaneous
  Country: IN (occurrence: None)
  Receive Date: 20121203
  Receipt Date: 20121203
  Transmission Date: 20130627
  Serious: Yes (Other)
  Sender: FDA-Public Use
  Company Number: B0848606A

PATIENT
  Age: 27 Year
  Sex: Female

DRUGS (3)
  1. LAMIVUDINE [Suspect]
     Indication: HIV INFECTION
  2. NEVIRAPINE [Suspect]
     Indication: HIV INFECTION
  3. STAVUDINE [Suspect]
     Indication: HIV INFECTION
     Route: 065

REACTIONS (4)
  - Retinal detachment [None]
  - Cytomegalovirus chorioretinitis [None]
  - Tuberculoid leprosy [None]
  - Immune reconstitution inflammatory syndrome [None]
